FAERS Safety Report 6377175-0 (Version None)
Quarter: 2009Q3

REPORT INFORMATION
  Report Type: 
  Country: None (occurrence: None)
  Receive Date: 20090924
  Receipt Date: 20090924
  Transmission Date: 20100115
  Serious: Yes (Hospitalization)
  Sender: FDA-Public Use
  Company Number: None

PATIENT
  Sex: Male
  Weight: 61 kg

DRUGS (20)
  1. CAPECITABINE 4000 MG X 6 DOSES [Suspect]
     Indication: PANCREATIC CARCINOMA
     Dosage: CAPECITABINE 2250 MG/M2 X 6 DOSES EVERY 8 HRS  ORAL
     Route: 048
     Dates: start: 20090910, end: 20090912
  2. OXALIPLATIN 149.6 MG [Suspect]
     Indication: PANCREATIC CARCINOMA
     Dosage: OXALIPLATIN 85 MG/M2 DAYS 1 AND 15 IV, 28 DAY CYCLE, C1D1
     Route: 042
     Dates: start: 20090910
  3. DECADRON [Concomitant]
  4. SORAFENIB [Concomitant]
  5. ZOFRAN [Concomitant]
  6. OXYCONTIN [Concomitant]
  7. AVANDIA [Concomitant]
  8. GLUCOPHAGE [Concomitant]
  9. STARLIX [Concomitant]
  10. VASOTEC [Concomitant]
  11. MEVACOR [Concomitant]
  12. JANUVIA [Concomitant]
  13. VIT E. [Concomitant]
  14. BENTYL [Concomitant]
  15. COMPAZINE [Concomitant]
  16. REGLAN [Concomitant]
  17. CITURCEL [Concomitant]
  18. ATIVAN [Concomitant]
  19. IRON [Concomitant]
  20. PERCOCET [Concomitant]

REACTIONS (2)
  - ILEUS [None]
  - PERITONEAL DISORDER [None]
